FAERS Safety Report 24647485 (Version 2)
Quarter: 2024Q4

REPORT INFORMATION
  Report Type: Spontaneous
  Country: SI (occurrence: SI)
  Receive Date: 20241121
  Receipt Date: 20241203
  Transmission Date: 20250115
  Serious: Yes (Other)
  Sender: MYLAN
  Company Number: SI-MYLANLABS-2024M1102600

PATIENT
  Age: 52 Year
  Sex: Female

DRUGS (10)
  1. LYRICA [Suspect]
     Active Substance: PREGABALIN
     Indication: Facial pain
     Dosage: 25 MILLIGRAM, BID
     Route: 065
     Dates: start: 2024
  2. LYRICA [Suspect]
     Active Substance: PREGABALIN
     Indication: Headache
     Dosage: UNK (INCREASE BY 25 MG EVERY 3-7 DAYS TO AT LEAST 2 X 75 MG)
     Route: 065
     Dates: start: 20241015
  3. LYRICA [Suspect]
     Active Substance: PREGABALIN
     Indication: Neck pain
     Dosage: 50 MILLIGRAM, BID
     Route: 065
     Dates: start: 20241029
  4. SERTRALINE [Concomitant]
     Active Substance: SERTRALINE HYDROCHLORIDE
     Dosage: 50 MILLIGRAM, QD
     Route: 065
  5. BROMAZEPAM [Concomitant]
     Active Substance: BROMAZEPAM
     Indication: Anxiety
     Dosage: 1.5 MILLIGRAM, PRN (BROMAZEPAM 1.5 MG AS NEEDED)
     Route: 065
  6. VITAMIN D3 [Concomitant]
     Active Substance: CHOLECALCIFEROL
     Dosage: 35 GTT DROPS, QW
     Route: 065
  7. MOMETASONE [Concomitant]
     Active Substance: MOMETASONE
     Dosage: UNK, BID (2X1 PUFF)
     Route: 045
  8. ESOMEPRAZOLE [Concomitant]
     Active Substance: ESOMEPRAZOLE
     Dosage: 20 MILLIGRAM, QD
     Route: 065
  9. METAMIZOLE SODIUM [Concomitant]
     Active Substance: METAMIZOLE SODIUM
     Indication: Pain
     Dosage: 1000 MILLIGRAM, TID (1-2 TBL UP TO 3 TIMES A DAY)
     Route: 065
  10. VALACYCLOVIR HYDROCHLORIDE [Concomitant]
     Active Substance: VALACYCLOVIR HYDROCHLORIDE
     Indication: Herpes zoster
     Dosage: 1000 MILLIGRAM, Q8H
     Route: 065

REACTIONS (2)
  - Mental impairment [Recovered/Resolved]
  - Off label use [Unknown]

NARRATIVE: CASE EVENT DATE: 20240101
